FAERS Safety Report 17802864 (Version 1)
Quarter: 2020Q2

REPORT INFORMATION
  Report Type: Spontaneous
  Country: US (occurrence: US)
  Receive Date: 20200519
  Receipt Date: 20200519
  Transmission Date: 20200714
  Serious: Yes (Hospitalization, Other)
  Sender: FDA-Public Use
  Company Number: US-ACCORD-182279

PATIENT
  Age: 4 Month
  Sex: Female
  Weight: 4.9 kg

DRUGS (6)
  1. MYCOPHENOLATE MOFETIL/MYCOPHENOLATE SODIUM/MYCOPHENOLIC ACID [Suspect]
     Active Substance: MYCOPHENOLIC ACID
     Indication: IMMUNOSUPPRESSANT DRUG THERAPY
  2. ANTITHYMOCYTE IMMUNOGLOBULIN [Suspect]
     Active Substance: THYMOCYTE IMMUNE GLOBULIN NOS
     Indication: IMMUNOSUPPRESSANT DRUG THERAPY
  3. OXYGEN. [Concomitant]
     Active Substance: OXYGEN
     Dosage: FLOWS OF 160 TO 180 ML/ KG
  4. TACROLIMUS. [Suspect]
     Active Substance: TACROLIMUS
     Indication: IMMUNOSUPPRESSANT DRUG THERAPY
     Dosage: ENTERAL
  5. OXYGEN. [Concomitant]
     Active Substance: OXYGEN
     Dosage: FLOWS OF 160 TO 180 ML/ KG
  6. METHYLPREDNISOLONE. [Suspect]
     Active Substance: METHYLPREDNISOLONE
     Indication: IMMUNOSUPPRESSANT DRUG THERAPY

REACTIONS (2)
  - Acute kidney injury [Recovered/Resolved]
  - Fluid overload [Recovered/Resolved]
